FAERS Safety Report 16744364 (Version 1)
Quarter: 2019Q3

REPORT INFORMATION
  Report Type: Other
  Country: DE (occurrence: DE)
  Receive Date: 20190827
  Receipt Date: 20190827
  Transmission Date: 20191005
  Serious: Yes (Death, Other)
  Sender: FDA-Public Use
  Company Number: DE-LUPIN PHARMACEUTICALS INC.-2019-05425

PATIENT
  Sex: Female

DRUGS (2)
  1. VALPROIC ACID. [Suspect]
     Active Substance: VALPROIC ACID
     Indication: EPILEPSY
     Dosage: UNKNOWN DOSE
     Route: 064
  2. LEVETIRACETAM. [Suspect]
     Active Substance: LEVETIRACETAM
     Indication: EPILEPSY
     Dosage: UNK UNK, QD (DAILY DOSE: 3000 (UNITS UNSPECIFIED))
     Route: 064

REACTIONS (2)
  - Foetal exposure during pregnancy [Unknown]
  - Sudden infant death syndrome [Fatal]

NARRATIVE: CASE EVENT DATE: 2006
